FAERS Safety Report 17411906 (Version 1)
Quarter: 2020Q1

REPORT INFORMATION
  Report Type: Spontaneous
  Country: US (occurrence: US)
  Receive Date: 20200129
  Receipt Date: 20200129
  Transmission Date: 20200409
  Serious: No
  Sender: FDA-Public Use
  Company Number: None

PATIENT
  Age: 57 Year
  Sex: Male

DRUGS (1)
  1. MERCAPTOPURINE TAB 50MG [Suspect]
     Active Substance: MERCAPTOPURINE
     Indication: NON-HODGKIN^S LYMPHOMA
     Route: 048

REACTIONS (1)
  - Drug intolerance [None]

NARRATIVE: CASE EVENT DATE: 20200129
